FAERS Safety Report 24787246 (Version 1)
Quarter: 2024Q4

REPORT INFORMATION
  Report Type: Spontaneous
  Country: US (occurrence: US)
  Receive Date: 20241230
  Receipt Date: 20241230
  Transmission Date: 20250115
  Serious: No
  Sender: MICRO LABS
  Company Number: US-862174955-ML2024-06734

PATIENT
  Age: 63 Year
  Sex: Female
  Weight: 79 kg

DRUGS (4)
  1. CROMOLYN SODIUM [Suspect]
     Active Substance: CROMOLYN SODIUM
     Indication: Mast cell activation syndrome
     Dosage: STRENGTH: 100 MG/5 ML?DOSE: BEGAN WITH THREE DROPS PER DAY, THEN INCREASED TO FIVE DROPS, AND ON 19
     Route: 048
     Dates: start: 20241212
  2. LOSARTAN [Concomitant]
     Active Substance: LOSARTAN
     Indication: Blood pressure abnormal
  3. NP THYROID [Concomitant]
     Active Substance: LEVOTHYROXINE\LIOTHYRONINE
     Indication: Autoimmune thyroiditis
  4. NP THYROID [Concomitant]
     Active Substance: LEVOTHYROXINE\LIOTHYRONINE
     Indication: Thyroid disorder

REACTIONS (11)
  - Hypersensitivity [Unknown]
  - Headache [Unknown]
  - Malaise [Unknown]
  - Nasopharyngitis [Unknown]
  - Heart rate increased [Unknown]
  - Condition aggravated [Unknown]
  - Diarrhoea [Unknown]
  - Palpitations [Unknown]
  - Histamine abnormal [Unknown]
  - Migraine [Unknown]
  - Incorrect dose administered [Unknown]

NARRATIVE: CASE EVENT DATE: 20241214
